FAERS Safety Report 18231728 (Version 1)
Quarter: 2020Q3

REPORT INFORMATION
  Report Type: Spontaneous
  Country: US (occurrence: US)
  Receive Date: 20200904
  Receipt Date: 20200904
  Transmission Date: 20201103
  Serious: No
  Sender: FDA-Public Use
  Company Number: US-ASTRAZENECA-2020SF05987

PATIENT
  Sex: Male

DRUGS (1)
  1. BYDUREON BCISE [Suspect]
     Active Substance: EXENATIDE
     Route: 058

REACTIONS (4)
  - Drug ineffective [Recovered/Resolved]
  - Dyspepsia [Recovered/Resolved]
  - Eructation [Recovered/Resolved]
  - Diarrhoea [Recovered/Resolved]
